FAERS Safety Report 7329382-8 (Version None)
Quarter: 2011Q1

REPORT INFORMATION
  Report Type: 
  Country: None (occurrence: None)
  Receive Date: 20110303
  Receipt Date: 20110225
  Transmission Date: 20110831
  Serious: Yes (Disabling, Other)
  Sender: FDA-Public Use
  Company Number: GB-PFIZER INC-2011042767

PATIENT
  Age: 42 Year
  Sex: Male
  Weight: 80 kg

DRUGS (2)
  1. CHAMPIX [Suspect]
     Indication: SMOKING CESSATION THERAPY
     Dosage: UNK
     Route: 048
     Dates: start: 20100924, end: 20110101
  2. CHAMPIX [Suspect]
     Dosage: UNK
     Dates: start: 20110101

REACTIONS (3)
  - WITHDRAWAL SYNDROME [None]
  - ANXIETY [None]
  - PANIC ATTACK [None]
